FAERS Safety Report 16409925 (Version 1)
Quarter: 2019Q2

REPORT INFORMATION
  Report Type: Report from Study
  Country: CN (occurrence: CN)
  Receive Date: 20190610
  Receipt Date: 20190610
  Transmission Date: 20190711
  Serious: Yes (Life-Threatening)
  Sender: FDA-Public Use
  Company Number: CN-JNJFOC-20190543327

PATIENT
  Age: 62 Year
  Sex: Male
  Weight: 47 kg

DRUGS (2)
  1. SIRTURO [Suspect]
     Active Substance: BEDAQUILINE FUMARATE
     Indication: TUBERCULOSIS
     Route: 048
     Dates: start: 2019, end: 2019
  2. SIRTURO [Suspect]
     Active Substance: BEDAQUILINE FUMARATE
     Indication: TUBERCULOSIS
     Route: 048
     Dates: start: 20190225, end: 2019

REACTIONS (1)
  - Electrocardiogram QT prolonged [Recovering/Resolving]

NARRATIVE: CASE EVENT DATE: 20190520
